FAERS Safety Report 5526735-5 (Version None)
Quarter: 2007Q4

REPORT INFORMATION
  Report Type: 
  Country: None (occurrence: None)
  Receive Date: 20071127
  Receipt Date: 20071121
  Transmission Date: 20080405
  Serious: Yes (Hospitalization)
  Sender: FDA-Public Use
  Company Number: NL-MERCK-0711NLD00025

PATIENT

DRUGS (1)
  1. COZAAR [Suspect]
     Route: 048
     Dates: end: 20071101

REACTIONS (1)
  - PANCREATITIS [None]
